FAERS Safety Report 7206750-6 (Version None)
Quarter: 2010Q4

REPORT INFORMATION
  Report Type: 
  Country: None (occurrence: None)
  Receive Date: 20101221
  Receipt Date: 20101207
  Transmission Date: 20110411
  Serious: Yes (Hospitalization)
  Sender: FDA-Public Use
  Company Number: 2010-4277

PATIENT
  Age: 77 Year
  Sex: Male

DRUGS (1)
  1. APO-GO PFS (APOMORPHINE HYDROCHLORIDE) [Suspect]
     Indication: PRODUCT USED FOR UNKNOWN INDICATION
     Dosage: 7 AM TO 11PM AT A RATE 4.5MG/H (4.5 MG, 16 IN 24HR), SUBCUTANEOUS
     Route: 058
     Dates: start: 20080703

REACTIONS (4)
  - GENERAL PHYSICAL HEALTH DETERIORATION [None]
  - HALLUCINATION [None]
  - INSOMNIA [None]
  - SOMNOLENCE [None]
